FAERS Safety Report 25058823 (Version 1)
Quarter: 2025Q1

REPORT INFORMATION
  Report Type: Spontaneous
  Country: CN (occurrence: CN)
  Receive Date: 20250310
  Receipt Date: 20250310
  Transmission Date: 20250409
  Serious: Yes (Other)
  Sender: FRESENIUS KABI
  Company Number: CN-FreseniusKabi-FK202503582

PATIENT
  Age: 67 Year
  Sex: Male
  Weight: 60 kg

DRUGS (2)
  1. EGG PHOSPHOLIPIDS\GLYCERIN\MEDIUM-CHAIN TRIGLYCERIDES\SOYBEAN OIL [Suspect]
     Active Substance: EGG PHOSPHOLIPIDS\GLYCERIN\MEDIUM-CHAIN TRIGLYCERIDES\SOYBEAN OIL
     Indication: Lung carcinoma cell type unspecified recurrent
     Dosage: FOA-INJECTION?ONCE A DAY?INFUSION STARTED AT 15:52 AND ENDED AT 17:20
     Route: 041
     Dates: start: 20250227, end: 20250227
  2. EGG PHOSPHOLIPIDS\GLYCERIN\MEDIUM-CHAIN TRIGLYCERIDES\SOYBEAN OIL [Suspect]
     Active Substance: EGG PHOSPHOLIPIDS\GLYCERIN\MEDIUM-CHAIN TRIGLYCERIDES\SOYBEAN OIL
     Indication: Nutritional supplementation

REACTIONS (3)
  - Dizziness [Recovering/Resolving]
  - Flushing [Recovering/Resolving]
  - Tachypnoea [Recovering/Resolving]

NARRATIVE: CASE EVENT DATE: 20250227
